FAERS Safety Report 17203578 (Version 1)
Quarter: 2019Q4

REPORT INFORMATION
  Report Type: Spontaneous
  Country: NL (occurrence: NL)
  Receive Date: 20191226
  Receipt Date: 20191226
  Transmission Date: 20200122
  Serious: Yes (Death)
  Sender: FDA-Public Use
  Company Number: NL-JNJFOC-20191232639

PATIENT
  Age: 91 Year
  Sex: Male
  Weight: 66 kg

DRUGS (6)
  1. COLECALCIFEROL [Concomitant]
     Active Substance: CHOLECALCIFEROL
     Dosage: 1XPM CAPSULE 50000IE
     Route: 065
  2. TRAVATAN [Concomitant]
     Active Substance: TRAVOPROST
     Dosage: 1DD1 BOTH EYES
     Route: 047
  3. RIVAROXABAN [Suspect]
     Active Substance: RIVAROXABAN
     Indication: ATRIAL FIBRILLATION
     Dosage: 1DD1
     Route: 048
     Dates: start: 20191120
  4. ACENOCOUMAROL [Suspect]
     Active Substance: ACENOCOUMAROL
     Indication: ATRIAL FIBRILLATION
     Dosage: VV
     Route: 048
     Dates: start: 201707, end: 20191120
  5. CALCICHEW [Concomitant]
     Active Substance: CALCIUM CARBONATE
     Dosage: 1DD500MG
     Dates: start: 201707
  6. PCM [Concomitant]
     Dosage: ZN

REACTIONS (1)
  - Cerebrovascular accident [Fatal]

NARRATIVE: CASE EVENT DATE: 20191123
